FAERS Safety Report 24986786 (Version 1)
Quarter: 2025Q1

REPORT INFORMATION
  Report Type: Spontaneous
  Country: US (occurrence: US)
  Receive Date: 20250219
  Receipt Date: 20250219
  Transmission Date: 20250409
  Serious: Yes (Other)
  Sender: MEDIMETRIKS
  Company Number: US-MEDIMETRIKS-2025-US-008398

PATIENT
  Age: 49 Year
  Sex: Male

DRUGS (2)
  1. AMPICILLIN SODIUM\SULBACTAM SODIUM [Suspect]
     Active Substance: AMPICILLIN SODIUM\SULBACTAM SODIUM
     Indication: Tuberculosis
     Route: 042
  2. MEROPENEM [Suspect]
     Active Substance: MEROPENEM
     Indication: Tuberculosis

REACTIONS (1)
  - Hypokalaemia [Unknown]
